FAERS Safety Report 15926771 (Version 1)
Quarter: 2019Q1

REPORT INFORMATION
  Report Type: Spontaneous
  Country: US (occurrence: US)
  Receive Date: 20190206
  Receipt Date: 20190206
  Transmission Date: 20190417
  Serious: Yes (Disabling, Other)
  Sender: FDA-Public Use
  Company Number: None

PATIENT
  Age: 45 Year
  Sex: Female
  Weight: 67.5 kg

DRUGS (6)
  1. KEPPRA [Concomitant]
     Active Substance: LEVETIRACETAM
  2. ZONEGRAN [Concomitant]
     Active Substance: ZONISAMIDE
  3. ONFI [Concomitant]
     Active Substance: CLOBAZAM
  4. SYNTHROID [Concomitant]
     Active Substance: LEVOTHYROXINE SODIUM
  5. VITAMIN D2 [Concomitant]
     Active Substance: ERGOCALCIFEROL
  6. BANZEL [Suspect]
     Active Substance: RUFINAMIDE
     Indication: SEIZURE
     Dosage: ORAL; 20 TEASPOON(S); 3 TIMES A DAY?
     Route: 048

REACTIONS (3)
  - Product quality issue [None]
  - Generalised tonic-clonic seizure [None]
  - Drug ineffective [None]

NARRATIVE: CASE EVENT DATE: 20180214
